FAERS Safety Report 4502283-6 (Version None)
Quarter: 2004Q4

REPORT INFORMATION
  Report Type: 
  Country: None (occurrence: None)
  Receive Date: 20041110
  Receipt Date: 20041029
  Transmission Date: 20050328
  Serious: Yes (Death, Life-Threatening, Hospitalization)
  Sender: FDA-Public Use
  Company Number: 2004069526

PATIENT
  Age: 80 Year
  Sex: Female
  Weight: 46 kg

DRUGS (7)
  1. DIFLUCAN [Suspect]
     Indication: BRONCHOPULMONARY ASPERGILLOSIS
     Dosage: 300 MG (150 MG, 2 IN  1 D), ORAL
     Route: 048
     Dates: start: 19980512, end: 20040908
  2. BENIDIPINE HYDROCHLORIDE (BENIDIPINE HYDROCHLORIDE) [Concomitant]
  3. ETIZOLAM (ETIZOLAM) [Concomitant]
  4. BROMHEXINE HYDROCHLORIDE (BROMHEXINE HYDROCHLORIDE) [Concomitant]
  5. CLOPERASTINE HYDROCHLORIDE (CLOPERASTINE HYDROCHLORIDE) [Concomitant]
  6. TEPRENONE (TEPRENONE) [Concomitant]
  7. SENNA LEAF (SENNA LEAF) [Concomitant]

REACTIONS (7)
  - ASPIRATION [None]
  - CORONARY ARTERY STENOSIS [None]
  - ELECTROCARDIOGRAM QT PROLONGED [None]
  - PULSE ABSENT [None]
  - SYNCOPE [None]
  - TORSADE DE POINTES [None]
  - VENTRICULAR TACHYCARDIA [None]
